FAERS Safety Report 5636840-0 (Version None)
Quarter: 2008Q1

REPORT INFORMATION
  Report Type: 
  Country: None (occurrence: None)
  Receive Date: 20080225
  Receipt Date: 20080213
  Transmission Date: 20080703
  Serious: Yes (Hospitalization, Other)
  Sender: FDA-Public Use
  Company Number: US-RANBAXY-2008US-12815

PATIENT

DRUGS (3)
  1. ISOTRETINOIN [Suspect]
     Indication: ACNE
     Dosage: 40 MG, QD
     Route: 048
     Dates: start: 20070701, end: 20070701
  2. ISOTRETINOIN [Suspect]
     Dosage: 40MG QAM, 30 MG QPM
     Route: 048
     Dates: start: 20070701, end: 20071221
  3. AMNESTEEM [Suspect]
     Indication: ACNE
     Dosage: 40 MG, QD
     Route: 048
     Dates: start: 20070716, end: 20071221

REACTIONS (2)
  - GENITAL LESION [None]
  - UTERINE CERVIX ULCER [None]
